FAERS Safety Report 4730081-7 (Version None)
Quarter: 2005Q3

REPORT INFORMATION
  Report Type: 
  Country: None (occurrence: None)
  Receive Date: 20050728
  Receipt Date: 20050715
  Transmission Date: 20060218
  Serious: Yes (Other)
  Sender: FDA-Public Use
  Company Number: HQWYE275919JUL05

PATIENT
  Age: 45 Year
  Sex: Female
  Weight: 113.5 kg

DRUGS (8)
  1. EFFEXOR XR [Suspect]
     Indication: ANXIETY
     Dosage: SEE IMAGE
     Route: 048
     Dates: start: 20050101, end: 20050519
  2. EFFEXOR XR [Suspect]
     Indication: HOT FLUSH
     Dosage: SEE IMAGE
     Route: 048
     Dates: start: 20050101, end: 20050519
  3. EFFEXOR XR [Suspect]
     Indication: ANXIETY
     Dosage: SEE IMAGE
     Route: 048
     Dates: start: 20050520, end: 20050602
  4. EFFEXOR XR [Suspect]
     Indication: HOT FLUSH
     Dosage: SEE IMAGE
     Route: 048
     Dates: start: 20050520, end: 20050602
  5. ATENOLOL [Concomitant]
  6. LOTENSIN HCT (ENAZEPRIL HYDROCHLORIDE/HYDROCHLOROTHIAZIDE) [Concomitant]
  7. PREVACID [Concomitant]
  8. ZOCOR [Concomitant]

REACTIONS (5)
  - ANGER [None]
  - DRUG DEPENDENCE [None]
  - DRUG WITHDRAWAL SYNDROME [None]
  - HYPOAESTHESIA [None]
  - LIBIDO DECREASED [None]
